FAERS Safety Report 7610689-1 (Version None)
Quarter: 2011Q3

REPORT INFORMATION
  Report Type: 
  Country: None (occurrence: None)
  Receive Date: 20110715
  Receipt Date: 20110714
  Transmission Date: 20111222
  Serious: Yes (Other)
  Sender: FDA-Public Use
  Company Number: CN-PFIZER INC-2011158945

PATIENT
  Age: 37 Year
  Sex: Female

DRUGS (3)
  1. METHYLCOBALAMIN/MULTIVITAMIN [Concomitant]
     Dosage: UNK
  2. CARBAMAZEPINE [Concomitant]
     Dosage: UNK
  3. LYRICA [Suspect]
     Indication: POST HERPETIC NEURALGIA
     Dosage: 75 MG, 2X/DAY
     Route: 048
     Dates: start: 20110707

REACTIONS (3)
  - PHARYNGITIS [None]
  - INCREASED UPPER AIRWAY SECRETION [None]
  - PETECHIAE [None]
